FAERS Safety Report 16915099 (Version 6)
Quarter: 2020Q4

REPORT INFORMATION
  Report Type: Report from Study
  Country: US (occurrence: US)
  Receive Date: 20191014
  Receipt Date: 20201122
  Transmission Date: 20210113
  Serious: Yes (Death, Hospitalization, Other)
  Sender: FDA-Public Use
  Company Number: US-BRISTOL-MYERS SQUIBB COMPANY-BMS-2019-095501

PATIENT
  Age: 44 Year
  Sex: Female

DRUGS (2)
  1. IPILIMUMAB [Suspect]
     Active Substance: IPILIMUMAB
     Indication: MALIGNANT MELANOMA
     Dosage: 3 MILLIGRAM/KILOGRAM
     Route: 042
     Dates: start: 20190814, end: 20190910
  2. IMO-2125 [Suspect]
     Active Substance: TILSOTOLIMOD SODIUM
     Indication: MALIGNANT MELANOMA
     Dosage: 226 MILLIGRAM
     Route: 036
     Dates: start: 20190814, end: 20200910

REACTIONS (4)
  - Malignant neoplasm progression [Fatal]
  - Abdominal pain [Recovering/Resolving]
  - Myositis [Unknown]
  - Troponin increased [Recovering/Resolving]

NARRATIVE: CASE EVENT DATE: 20190827
